FAERS Safety Report 11878144 (Version 1)
Quarter: 2015Q4

REPORT INFORMATION
  Report Type: Spontaneous
  Country: US (occurrence: US)
  Receive Date: 20151230
  Receipt Date: 20151230
  Transmission Date: 20160305
  Serious: No
  Sender: FDA-Public Use
  Company Number: US-009507513-1512USA007017

PATIENT
  Age: 30 Year
  Sex: Female

DRUGS (3)
  1. EMTRICITABINE (+) TENOFOVIR DISOPROXIL FUMARATE [Suspect]
     Active Substance: EMTRICITABINE\TENOFOVIR DISOPROXIL
     Dosage: TOTAL DAILY DOSE:1 UNITS NOT PROVIDED
     Route: 048
  2. RALTEGRAVIR POTASSIUM [Suspect]
     Active Substance: RALTEGRAVIR POTASSIUM
     Dosage: TOTAL DAILY DOSE: 800 UNITS NOT PROVIDED
     Route: 048
  3. ABACAVIR (+) DOLUTEGRAVIR SODIUM (+) LAMIVUDINE [Suspect]
     Active Substance: ABACAVIR SULFATE\DOLUTEGRAVIR SODIUM\LAMIVUDINE
     Dosage: TOTAL DAILY DOSE: 1 UNITS NOT PROVIDED
     Route: 048

REACTIONS (3)
  - Pregnancy [None]
  - Exposure during pregnancy [Recovered/Resolved]
  - No adverse event [Unknown]
